FAERS Safety Report 7356552-5 (Version None)
Quarter: 2011Q1

REPORT INFORMATION
  Report Type: 
  Country: None (occurrence: None)
  Receive Date: 20110316
  Receipt Date: 20110302
  Transmission Date: 20110831
  Serious: Yes (Other)
  Sender: FDA-Public Use
  Company Number: PHHY2011US17216

PATIENT
  Sex: Male

DRUGS (2)
  1. MYFORTIC [Suspect]
     Indication: RENAL TRANSPLANT
     Route: 048
  2. NEORAL [Suspect]
     Indication: RENAL TRANSPLANT

REACTIONS (1)
  - CEREBROVASCULAR ACCIDENT [None]
